FAERS Safety Report 7970075 (Version 5)
Quarter: 2013Q4

REPORT INFORMATION
  Report Type: Spontaneous
  Country: JP (occurrence: JP)
  Receive Date: 20110601
  Receipt Date: 20131015
  Transmission Date: 20140711
  Serious: Yes (Disabling)
  Sender: FDA-Public Use
  Company Number: JP-PFIZER INC-2011117610

PATIENT
  Age: 83 Year
  Sex: Female
  Weight: 49 kg

DRUGS (2)
  1. ATARAX-P [Suspect]
     Dosage: 50 MG, SINGLE
     Route: 030
     Dates: start: 20110411, end: 20110411
  2. SOSEGON [Suspect]
     Dosage: 15 MG, 1X/DAY
     Route: 030
     Dates: start: 20110411, end: 20110411

REACTIONS (2)
  - Radial nerve palsy [Not Recovered/Not Resolved]
  - Ulnar nerve palsy [Not Recovered/Not Resolved]
